FAERS Safety Report 5353536-3 (Version None)
Quarter: 2007Q2

REPORT INFORMATION
  Report Type: 
  Country: None (occurrence: None)
  Receive Date: 20070608
  Receipt Date: 20070608
  Transmission Date: 20071010
  Serious: Yes (Hospitalization)
  Sender: FDA-Public Use
  Company Number: None

PATIENT
  Age: 79 Year
  Sex: Male
  Weight: 94.2121 kg

DRUGS (1)
  1. CARBAMAZEPINE [Suspect]
     Indication: NEUROPATHY
     Dosage: 200MG BID PO
     Route: 048
     Dates: start: 20070509, end: 20070517

REACTIONS (15)
  - ATRIAL FIBRILLATION [None]
  - BILIARY TRACT INFECTION [None]
  - BLOOD PRESSURE SYSTOLIC INCREASED [None]
  - BODY TEMPERATURE INCREASED [None]
  - CHOLELITHIASIS [None]
  - CHROMATURIA [None]
  - DECREASED APPETITE [None]
  - DELIRIUM [None]
  - ELECTROLYTE IMBALANCE [None]
  - HYPERBILIRUBINAEMIA [None]
  - JAUNDICE [None]
  - LETHARGY [None]
  - PRURITUS [None]
  - RASH [None]
  - ROCKY MOUNTAIN SPOTTED FEVER [None]
